FAERS Safety Report 6208835-X (Version None)
Quarter: 2009Q2

REPORT INFORMATION
  Report Type: 
  Country: None (occurrence: None)
  Receive Date: 20090529
  Receipt Date: 20090527
  Transmission Date: 20091009
  Serious: Yes (Death)
  Sender: FDA-Public Use
  Company Number: A0783293A

PATIENT
  Age: 57 Year
  Sex: Female

DRUGS (4)
  1. LAPATINIB [Suspect]
     Dates: start: 20090318
  2. ABRAXANE [Suspect]
     Route: 042
     Dates: start: 20090318
  3. VERAPAMIL [Concomitant]
  4. LOPRESSOR [Concomitant]

REACTIONS (3)
  - CARDIAC ARREST [None]
  - DEPRESSED LEVEL OF CONSCIOUSNESS [None]
  - SUDDEN DEATH [None]
